FAERS Safety Report 5277826-8 (Version None)
Quarter: 2007Q1

REPORT INFORMATION
  Report Type: 
  Country: None (occurrence: None)
  Receive Date: 20070321
  Receipt Date: 20070309
  Transmission Date: 20070707
  Serious: Yes (Other)
  Sender: FDA-Public Use
  Company Number: JPI-P-000869

PATIENT
  Age: 23 Year
  Sex: Female

DRUGS (1)
  1. XYREM [Suspect]
     Indication: SLEEP APNOEA SYNDROME
     Dosage: 2.5 GM, ORAL
     Route: 048
     Dates: start: 20070215

REACTIONS (1)
  - CONVULSION [None]
